FAERS Safety Report 6265397-9 (Version None)
Quarter: 2009Q3

REPORT INFORMATION
  Report Type: 
  Country: None (occurrence: None)
  Receive Date: 20090713
  Receipt Date: 20090703
  Transmission Date: 20100115
  Serious: Yes (Disabling)
  Sender: FDA-Public Use
  Company Number: FR-ASTRAZENECA-2009CG00925

PATIENT
  Age: 16617 Day
  Sex: Male

DRUGS (6)
  1. NAROPIN [Suspect]
     Indication: COMPLEX REGIONAL PAIN SYNDROME
     Route: 053
     Dates: start: 20060828, end: 20060828
  2. NAROPIN [Suspect]
     Route: 053
     Dates: start: 20060828, end: 20060828
  3. NAROPIN [Suspect]
     Route: 053
     Dates: start: 20060911, end: 20060911
  4. NAROPIN [Suspect]
     Route: 053
     Dates: start: 20060911, end: 20060911
  5. NAROPIN [Suspect]
     Route: 053
     Dates: start: 20060917, end: 20060917
  6. NAROPIN [Suspect]
     Route: 053
     Dates: start: 20060917, end: 20060917

REACTIONS (1)
  - AXONAL NEUROPATHY [None]
